FAERS Safety Report 7771379-8 (Version None)
Quarter: 2011Q3

REPORT INFORMATION
  Report Type: 
  Country: None (occurrence: None)
  Receive Date: 20110922
  Receipt Date: 20110919
  Transmission Date: 20111222
  Serious: Yes (Death, Hospitalization, Other)
  Sender: FDA-Public Use
  Company Number: US-JNJFOC-20110706676

PATIENT
  Sex: Male
  Weight: 65.77 kg

DRUGS (11)
  1. LEVAQUIN [Suspect]
     Indication: LUNG INFILTRATION
     Route: 048
     Dates: start: 20081106, end: 20081109
  2. LOPRESSOR [Concomitant]
     Indication: BLOOD PRESSURE
     Route: 048
     Dates: start: 20080901, end: 20090106
  3. WARFARIN SODIUM [Interacting]
     Indication: DEEP VEIN THROMBOSIS
     Route: 048
     Dates: start: 20080901
  4. AMBIEN [Concomitant]
     Indication: INSOMNIA
     Dosage: AS NEEDED
     Route: 065
     Dates: start: 20080901, end: 20090106
  5. WARFARIN SODIUM [Interacting]
     Route: 048
  6. ARICEPT [Concomitant]
     Indication: DEMENTIA
     Route: 048
     Dates: start: 20080901, end: 20081101
  7. WARFARIN SODIUM [Interacting]
     Route: 048
  8. ZYPREXA ZYDIS [Concomitant]
     Route: 065
     Dates: start: 20080901, end: 20090106
  9. LEVAQUIN [Suspect]
     Route: 048
     Dates: start: 20081001, end: 20081001
  10. WARFARIN SODIUM [Interacting]
     Indication: ANTICOAGULANT THERAPY
     Route: 048
     Dates: start: 20080901
  11. DEPAKOTE [Concomitant]
     Route: 065
     Dates: start: 20080901, end: 20081001

REACTIONS (6)
  - ATRIAL FIBRILLATION [None]
  - RECTAL HAEMORRHAGE [None]
  - GASTROINTESTINAL HAEMORRHAGE [None]
  - HAEMOPTYSIS [None]
  - DRUG INTERACTION [None]
  - ANAPHYLACTIC SHOCK [None]
